FAERS Safety Report 8382852-6 (Version None)
Quarter: 2012Q2

REPORT INFORMATION
  Report Type: 
  Country: None (occurrence: None)
  Receive Date: 20120524
  Receipt Date: 20120509
  Transmission Date: 20120825
  Serious: Yes (Hospitalization, Disabling, Other)
  Sender: FDA-Public Use
  Company Number: FR-JNJFOC-20120509767

PATIENT
  Age: 59 Year
  Sex: Female

DRUGS (3)
  1. COLCHICINE [Suspect]
     Indication: PUSTULAR PSORIASIS
     Dosage: 1MG/DAY
     Route: 065
  2. ACITRETIN [Suspect]
     Indication: PUSTULAR PSORIASIS
     Dosage: 50MG/DAY
     Route: 065
  3. USTEKINUMAB [Suspect]
     Indication: PUSTULAR PSORIASIS
     Route: 058
     Dates: start: 20100601

REACTIONS (3)
  - DRUG INEFFECTIVE FOR UNAPPROVED INDICATION [None]
  - PUSTULAR PSORIASIS [None]
  - NEUTROPHIL COUNT INCREASED [None]
